FAERS Safety Report 5472140-X (Version None)
Quarter: 2007Q3

REPORT INFORMATION
  Report Type: 
  Country: None (occurrence: None)
  Receive Date: 20070928
  Receipt Date: 20070920
  Transmission Date: 20080115
  Serious: Yes (Hospitalization)
  Sender: FDA-Public Use
  Company Number: JP-GILEAD-2007-0013452

PATIENT
  Sex: Male

DRUGS (5)
  1. VIREAD [Suspect]
     Indication: HIV INFECTION
     Route: 048
     Dates: start: 20051129, end: 20070313
  2. EPIVIR [Suspect]
     Indication: HIV INFECTION
     Route: 048
     Dates: start: 20051129, end: 20070313
  3. EPIVIR [Suspect]
     Route: 048
     Dates: start: 20050908, end: 20051128
  4. REYATAZ [Suspect]
     Indication: HIV INFECTION
     Route: 048
     Dates: start: 20051129, end: 20070313
  5. NORVIR [Concomitant]
     Dates: start: 20051125, end: 20070313

REACTIONS (1)
  - RENAL DISORDER [None]
